FAERS Safety Report 26206695 (Version 2)
Quarter: 2025Q4

REPORT INFORMATION
  Report Type: Spontaneous
  Country: US (occurrence: US)
  Receive Date: 20251229
  Receipt Date: 20251231
  Transmission Date: 20260118
  Serious: Yes (Death, Life-Threatening, Other)
  Sender: ADVANZ PHARMA
  Company Number: US-AUROBINDO-AUR-APL-2025-061365

PATIENT

DRUGS (1)
  1. HYDROXYCHLOROQUINE [Suspect]
     Active Substance: HYDROXYCHLOROQUINE
     Indication: Rheumatoid arthritis
     Dosage: 200 MG, QD
     Route: 065

REACTIONS (13)
  - Cardiogenic shock [Fatal]
  - Nodal rhythm [Fatal]
  - Bundle branch block left [Fatal]
  - Ventricular hypertrophy [Fatal]
  - Right ventricular dysfunction [Fatal]
  - Mitral valve incompetence [Fatal]
  - Tricuspid valve incompetence [Fatal]
  - Atrioventricular block complete [Fatal]
  - Cardiac arrest [Fatal]
  - Brain injury [Fatal]
  - Conduction disorder [Fatal]
  - Toxicity to various agents [Fatal]
  - Cardiotoxicity [Fatal]
